FAERS Safety Report 13624220 (Version 2)
Quarter: 2017Q2

REPORT INFORMATION
  Report Type: Spontaneous
  Country: IT (occurrence: IT)
  Receive Date: 20170608
  Receipt Date: 20170615
  Transmission Date: 20170830
  Serious: Yes (Other)
  Sender: FDA-Public Use
  Company Number: IT-ACCORD-052313

PATIENT
  Age: 14 Year
  Sex: Female
  Weight: 61 kg

DRUGS (1)
  1. LEVETIRACETAM. [Suspect]
     Active Substance: LEVETIRACETAM
     Indication: EPILEPSY
     Route: 048
     Dates: start: 20140101

REACTIONS (4)
  - Headache [Recovered/Resolved]
  - Drug use disorder [Unknown]
  - Photophobia [Recovered/Resolved]
  - Phonophobia [Unknown]

NARRATIVE: CASE EVENT DATE: 20140101
